FAERS Safety Report 5867681-7 (Version None)
Quarter: 2008Q3

REPORT INFORMATION
  Report Type: 
  Country: None (occurrence: None)
  Receive Date: 20080902
  Receipt Date: 20080116
  Transmission Date: 20090109
  Serious: No
  Sender: FDA-Public Use
  Company Number: US-ABBOTT-08P-163-0433988-00

PATIENT
  Sex: Female
  Weight: 74.91 kg

DRUGS (4)
  1. DEPAKOTE ER [Suspect]
     Indication: PANIC ATTACK
     Route: 048
     Dates: start: 20060401
  2. ESCITALOPRAM OXALATE [Concomitant]
     Indication: PANIC ATTACK
  3. LORAZEPAM [Concomitant]
     Indication: PANIC ATTACK
  4. CANDESARTAN CILEXETIL [Concomitant]
     Indication: HYPERTENSION

REACTIONS (4)
  - FALL [None]
  - JOINT SPRAIN [None]
  - OEDEMA PERIPHERAL [None]
  - SKIN LACERATION [None]
